FAERS Safety Report 4814836-6 (Version None)
Quarter: 2005Q4

REPORT INFORMATION
  Report Type: 
  Country: None (occurrence: None)
  Receive Date: 20051028
  Receipt Date: 20050914
  Transmission Date: 20060501
  Serious: Yes (Other)
  Sender: FDA-Public Use
  Company Number: PHBS2005JP13420

PATIENT
  Age: 75 Year
  Sex: Female

DRUGS (5)
  1. FASTIC [Suspect]
     Indication: DIABETES MELLITUS
     Dosage: 90 MG, QD
     Route: 048
     Dates: start: 20050804, end: 20050805
  2. FASTIC [Suspect]
     Dosage: 270 MG, QD
     Route: 048
     Dates: start: 20050805, end: 20050808
  3. FRANDOL [Concomitant]
     Indication: MYOCARDIAL INFARCTION
     Dates: start: 20050409, end: 20050422
  4. GASTER [Concomitant]
     Indication: DYSPEPSIA
     Dosage: 20 MG, UNK
     Dates: start: 20050422, end: 20050824
  5. NITOROL [Concomitant]
     Indication: MYOCARDIAL INFARCTION
     Dosage: 40 MG, UNK
     Dates: start: 20050722

REACTIONS (7)
  - ALANINE AMINOTRANSFERASE INCREASED [None]
  - ASPARTATE AMINOTRANSFERASE INCREASED [None]
  - BLOOD ALKALINE PHOSPHATASE INCREASED [None]
  - BLOOD BILIRUBIN INCREASED [None]
  - BLOOD LACTATE DEHYDROGENASE INCREASED [None]
  - GAMMA-GLUTAMYLTRANSFERASE INCREASED [None]
  - HEPATIC FUNCTION ABNORMAL [None]
